FAERS Safety Report 9523869 (Version 1)
Quarter: 2013Q3

REPORT INFORMATION
  Report Type: Spontaneous
  Country: US (occurrence: None)
  Receive Date: 20130912
  Receipt Date: 20130912
  Transmission Date: 20140515
  Serious: Yes (Death)
  Sender: FDA-Public Use
  Company Number: None

PATIENT
  Age: 72 Year
  Sex: Male
  Weight: 68 kg

DRUGS (1)
  1. ZESTORETIC [Suspect]

REACTIONS (4)
  - Angioedema [None]
  - Toxicity to various agents [None]
  - Respiratory arrest [None]
  - Cardiac arrest [None]
